FAERS Safety Report 5256189-8 (Version None)
Quarter: 2007Q1

REPORT INFORMATION
  Report Type: 
  Country: None (occurrence: None)
  Receive Date: 20070306
  Receipt Date: 20070227
  Transmission Date: 20070707
  Serious: Yes (Death, Hospitalization)
  Sender: FDA-Public Use
  Company Number: FR-AVENTIS-200710712FR

PATIENT
  Age: 55 Year
  Sex: Female

DRUGS (4)
  1. TAXOTERE [Suspect]
     Indication: BREAST CANCER
     Route: 042
     Dates: start: 20040827, end: 20050415
  2. NEULASTA [Suspect]
     Route: 058
     Dates: start: 20040827, end: 20050415
  3. FARMORUBICINE                      /00699301/ [Suspect]
     Indication: BREAST CANCER
     Route: 042
     Dates: start: 20040827, end: 20050415
  4. RADIOTHERAPY [Concomitant]
     Indication: BREAST CANCER

REACTIONS (1)
  - ACUTE LEUKAEMIA [None]
